FAERS Safety Report 8339639-X (Version None)
Quarter: 2012Q2

REPORT INFORMATION
  Report Type: 
  Country: None (occurrence: None)
  Receive Date: 20120502
  Receipt Date: 20120424
  Transmission Date: 20120825
  Serious: Yes (Life-Threatening, Hospitalization)
  Sender: FDA-Public Use
  Company Number: DSM-2012-00023

PATIENT
  Age: 77 Year
  Sex: Female
  Weight: 100 kg

DRUGS (2)
  1. ALDALIX (SPIRONOLACTONE, FUROSEMIDE) (SPIRONOLACTONE, FUROSEMIDE) [Concomitant]
  2. AXELER (OLMESARTAN MEDOXOMIL, AMLODIPINE BESILATE) (TABLET) (OLMESARTA [Suspect]
     Indication: HYPERTENSION
     Dosage: 40/5 MG, ORAL
     Route: 048
     Dates: start: 20110901, end: 20120101

REACTIONS (3)
  - TACHYCARDIA [None]
  - DRUG INTERACTION [None]
  - HYPERKALAEMIA [None]
